FAERS Safety Report 16319967 (Version 1)
Quarter: 2019Q2

REPORT INFORMATION
  Report Type: Spontaneous
  Country: US (occurrence: US)
  Receive Date: 20190410
  Receipt Date: 20190410
  Transmission Date: 20190711
  Serious: No
  Sender: FDA-Public Use
  Company Number: None

PATIENT

DRUGS (1)
  1. IBRANCE [Suspect]
     Active Substance: PALBOCICLIB
     Indication: BREAST CANCER
     Dates: start: 201807

REACTIONS (3)
  - Seasonal allergy [None]
  - Upper respiratory tract infection [None]
  - Nasopharyngitis [None]

NARRATIVE: CASE EVENT DATE: 20190410
